FAERS Safety Report 7902369-X (Version None)
Quarter: 2011Q4

REPORT INFORMATION
  Report Type: 
  Country: None (occurrence: None)
  Receive Date: 20111108
  Receipt Date: 20111026
  Transmission Date: 20120403
  Serious: Yes (Other)
  Sender: FDA-Public Use
  Company Number: SK-MYLANLABS-2011S1022580

PATIENT
  Age: 73 Year
  Sex: Male

DRUGS (3)
  1. IBUPROFEN [Suspect]
     Indication: ANKYLOSING SPONDYLITIS
     Dosage: INTERMITTENT 2-3 X 400MG
     Route: 065
  2. DICLOFENAC SODIUM [Suspect]
     Indication: ANKYLOSING SPONDYLITIS
     Dosage: 1-2 X 75MG
     Route: 065
  3. INFLIXIMAB [Concomitant]
     Indication: ANKYLOSING SPONDYLITIS
     Route: 065

REACTIONS (1)
  - COLITIS [None]
